FAERS Safety Report 4352376-1 (Version None)
Quarter: 2004Q2

REPORT INFORMATION
  Report Type: 
  Country: None (occurrence: None)
  Receive Date: 20040428
  Receipt Date: 20040415
  Transmission Date: 20050107
  Serious: Yes (Life-Threatening, Hospitalization, Other)
  Sender: FDA-Public Use
  Company Number: 2004014971

PATIENT
  Age: 68 Year
  Sex: Female

DRUGS (6)
  1. PRAZOSIN HCL [Suspect]
     Indication: ESSENTIAL HYPERTENSION
     Dosage: 5 MG , ORAL
     Route: 048
     Dates: end: 20040117
  2. AMLODIPINE [Suspect]
     Indication: ESSENTIAL HYPERTENSION
     Dosage: 5 MG ,ORAL
     Route: 048
     Dates: end: 20040117
  3. ISOSORBIDE DINITRATE [Suspect]
     Indication: ILL-DEFINED DISORDER
     Dosage: INTRVENOUES
     Route: 042
     Dates: end: 20040118
  4. NICARDIPINE HCL [Suspect]
     Indication: ESSENTIAL HYPERTENSION
     Dosage: INTRAVENOUS
     Route: 042
     Dates: start: 20040109, end: 20040118
  5. FUROSEMIDE [Suspect]
     Indication: ILL-DEFINED DISORDER
     Dosage: 250 MG, INTRAVENOUS
     Route: 042
     Dates: end: 20040117
  6. RILMENIDINE (RILMENIDINE) [Suspect]
     Indication: ESSENTIAL HYPERTENSION

REACTIONS (13)
  - ACUTE RESPIRATORY FAILURE [None]
  - AORTIC ANEURYSM [None]
  - BLOOD PRESSURE DECREASED [None]
  - CARDIAC FAILURE CONGESTIVE [None]
  - COUGH [None]
  - DRUG INTERACTION [None]
  - HAEMOGLOBIN DECREASED [None]
  - HYPERKALAEMIA [None]
  - OLIGURIA [None]
  - RENAL ARTERY OCCLUSION [None]
  - RENAL FAILURE [None]
  - SUPERINFECTION LUNG [None]
  - TREATMENT NONCOMPLIANCE [None]
